FAERS Safety Report 15351311 (Version 2)
Quarter: 2018Q3

REPORT INFORMATION
  Report Type: Spontaneous
  Country: US (occurrence: US)
  Receive Date: 20180905
  Receipt Date: 20180906
  Transmission Date: 20181010
  Serious: No
  Sender: FDA-Public Use
  Company Number: US-PFIZER INC-2018351813

PATIENT
  Age: 8 Year
  Sex: Male
  Weight: 28.57 kg

DRUGS (1)
  1. QUILLICHEW ER [Suspect]
     Active Substance: METHYLPHENIDATE HYDROCHLORIDE
     Dosage: UNK

REACTIONS (3)
  - Product taste abnormal [Unknown]
  - Poor quality drug administered [Unknown]
  - Intentional product misuse [Unknown]
